FAERS Safety Report 18744910 (Version 1)
Quarter: 2021Q1

REPORT INFORMATION
  Report Type: Spontaneous
  Country: US (occurrence: US)
  Receive Date: 20210115
  Receipt Date: 20210115
  Transmission Date: 20210419
  Serious: Yes (Hospitalization, Other)
  Sender: FDA-Public Use
  Company Number: US-ORION CORPORATION ORION PHARMA-21_00012610

PATIENT
  Age: 79 Year
  Sex: Female

DRUGS (5)
  1. PREDNISONE. [Suspect]
     Active Substance: PREDNISONE
     Indication: RHEUMATOID ARTHRITIS
     Route: 065
  2. ADALIMUMAB [Suspect]
     Active Substance: ADALIMUMAB
     Indication: RHEUMATOID ARTHRITIS
     Dosage: BIMONTHLY
     Route: 065
  3. NORMAL SALINE [Concomitant]
     Active Substance: SODIUM CHLORIDE
     Route: 008
  4. METHOTREXATE. [Suspect]
     Active Substance: METHOTREXATE
     Indication: RHEUMATOID ARTHRITIS
     Route: 065
  5. METHYLPREDNISOLONE. [Suspect]
     Active Substance: METHYLPREDNISOLONE
     Indication: LUMBAR SPINAL STENOSIS
     Dosage: ESI
     Route: 008

REACTIONS (7)
  - Paradoxical drug reaction [Unknown]
  - Myositis [Unknown]
  - Red blood cell sedimentation rate increased [Recovering/Resolving]
  - Back pain [Recovering/Resolving]
  - C-reactive protein increased [Recovering/Resolving]
  - Inflammation [Unknown]
  - Spinal disorder [Unknown]
